FAERS Safety Report 8096795-9 (Version None)
Quarter: 2012Q1

REPORT INFORMATION
  Report Type: 
  Country: None (occurrence: None)
  Receive Date: 20120129
  Receipt Date: 20111201
  Transmission Date: 20120608
  Serious: No
  Sender: FDA-Public Use
  Company Number: US-ABBOTT-11P-163-0880401-00

PATIENT
  Age: 43 Year
  Sex: Female

DRUGS (6)
  1. ORTHO TRI-CYCLEN [Concomitant]
     Indication: CONTRACEPTION
  2. IMURAN [Concomitant]
     Indication: CROHN'S DISEASE
  3. ADVAIR DISKUS 100/50 [Concomitant]
     Indication: ASTHMA
  4. UNKNOWN MEDICATION [Concomitant]
     Indication: ASTHMA
     Route: 048
  5. HUMIRA [Suspect]
     Indication: CROHN'S DISEASE
     Dates: start: 20111001
  6. SULFASALAZINE [Concomitant]
     Indication: CROHN'S DISEASE

REACTIONS (1)
  - RASH MACULO-PAPULAR [None]
